FAERS Safety Report 16391620 (Version 5)
Quarter: 2019Q4

REPORT INFORMATION
  Report Type: Report from Study
  Country: CA (occurrence: CA)
  Receive Date: 20190605
  Receipt Date: 20191216
  Transmission Date: 20200122
  Serious: Yes (Other)
  Sender: FDA-Public Use
  Company Number: CA-REGENERON PHARMACEUTICALS, INC.-2019-33842

PATIENT

DRUGS (2)
  1. EYLEA [Suspect]
     Active Substance: AFLIBERCEPT
     Dosage: UNK
  2. EYLEA [Suspect]
     Active Substance: AFLIBERCEPT
     Indication: DIABETIC RETINAL OEDEMA
     Dosage: UNK, LEFT EYE
     Dates: start: 20180404

REACTIONS (8)
  - Photophobia [Not Recovered/Not Resolved]
  - Vitreous haemorrhage [Recovering/Resolving]
  - Vitreous floaters [Not Recovered/Not Resolved]
  - Cerebral disorder [Unknown]
  - Ocular discomfort [Not Recovered/Not Resolved]
  - Vitreous floaters [Not Recovered/Not Resolved]
  - Eye haemorrhage [Unknown]
  - Dry eye [Unknown]

NARRATIVE: CASE EVENT DATE: 20180404
